FAERS Safety Report 4920325-0 (Version None)
Quarter: 2006Q1

REPORT INFORMATION
  Report Type: 
  Country: None (occurrence: None)
  Receive Date: 20060223
  Receipt Date: 20050324
  Transmission Date: 20060701
  Serious: Yes (Hospitalization, Disabling)
  Sender: FDA-Public Use
  Company Number: US-MERCK-0503USA04655

PATIENT
  Age: 41 Year
  Sex: Female
  Weight: 82 kg

DRUGS (2)
  1. VIOXX [Suspect]
     Indication: OSTEOARTHRITIS
     Route: 048
     Dates: start: 20000801, end: 20030303
  2. ASPIRIN [Concomitant]
     Route: 048

REACTIONS (5)
  - CARDIAC FAILURE [None]
  - GALLBLADDER INJURY [None]
  - HEART INJURY [None]
  - KNEE ARTHROPLASTY [None]
  - LIMB INJURY [None]
